FAERS Safety Report 9594495 (Version 1)
Quarter: 2013Q4

REPORT INFORMATION
  Report Type: Spontaneous
  Country: US (occurrence: US)
  Receive Date: 20131004
  Receipt Date: 20131004
  Transmission Date: 20140711
  Serious: No
  Sender: FDA-Public Use
  Company Number: US-GLAXOSMITHKLINE-A0999579A

PATIENT
  Age: 22 Year
  Sex: Female
  Weight: 65.9 kg

DRUGS (9)
  1. IMITREX [Suspect]
     Indication: MIGRAINE
     Route: 045
     Dates: start: 201104, end: 20121031
  2. FLEXERIL [Concomitant]
  3. VENTOLIN [Concomitant]
  4. QVAR [Concomitant]
  5. ZYPREXA [Concomitant]
  6. ZOFRAN [Concomitant]
  7. DESVENLAFAXINE SUCCINATE [Concomitant]
  8. VISTARIL [Concomitant]
  9. IMITREX [Concomitant]

REACTIONS (2)
  - Nausea [Recovered/Resolved]
  - Upper-airway cough syndrome [Recovered/Resolved]
